FAERS Safety Report 16348511 (Version 1)
Quarter: 2019Q2

REPORT INFORMATION
  Report Type: Spontaneous
  Country: US (occurrence: US)
  Receive Date: 20190523
  Receipt Date: 20190523
  Transmission Date: 20190711
  Serious: No
  Sender: FDA-Public Use
  Company Number: US-009507513-1905USA008206

PATIENT
  Sex: Female

DRUGS (3)
  1. SINEMET [Suspect]
     Active Substance: CARBIDOPA\LEVODOPA
     Indication: PARKINSON^S DISEASE
     Dosage: 25/100 (UNITS UNSPECIFIED), ELEVEN AND HALF TABLETS A DAY
     Route: 048
  2. SINEMET [Suspect]
     Active Substance: CARBIDOPA\LEVODOPA
     Dosage: 25/100 (UNITS UNSPECIFIED), 1 TABLET EVERY 2 HOURS WHICH WAS SEVEN TABLETS A DAY
     Route: 048
  3. XADAGO [Concomitant]
     Active Substance: SAFINAMIDE MESYLATE
     Dosage: UNK

REACTIONS (4)
  - Product quality issue [Unknown]
  - Product availability issue [Unknown]
  - Dyskinesia [Not Recovered/Not Resolved]
  - Product dose omission [Unknown]
